FAERS Safety Report 21284614 (Version 1)
Quarter: 2022Q3

REPORT INFORMATION
  Report Type: Spontaneous
  Country: US (occurrence: US)
  Receive Date: 20220902
  Receipt Date: 20220902
  Transmission Date: 20221026
  Serious: Yes (Other)
  Sender: FDA-Public Use
  Company Number: US-SA-SAC20220826001620

PATIENT
  Age: 64 Year
  Sex: Male
  Weight: 227 kg

DRUGS (2)
  1. DUPIXENT [Suspect]
     Active Substance: DUPILUMAB
     Indication: Nasal polyps
     Dosage: 200MG EVERY 14 DAYS
     Route: 058
     Dates: start: 2021
  2. SYMBICORT [Concomitant]
     Active Substance: BUDESONIDE\FORMOTEROL FUMARATE DIHYDRATE

REACTIONS (7)
  - Haematochezia [Recovered/Resolved]
  - Dehydration [Recovered/Resolved]
  - Paraesthesia [Recovered/Resolved]
  - Gastrointestinal tract irritation [Recovered/Resolved]
  - Hypoaesthesia [Recovered/Resolved]
  - Dry eye [Recovered/Resolved]
  - Product use in unapproved indication [Recovered/Resolved]
